FAERS Safety Report 5759800-8 (Version None)
Quarter: 2008Q2

REPORT INFORMATION
  Report Type: 
  Country: None (occurrence: None)
  Receive Date: 20080605
  Receipt Date: 20080603
  Transmission Date: 20081010
  Serious: Yes (Hospitalization)
  Sender: FDA-Public Use
  Company Number: D0057427A

PATIENT
  Age: 65 Year
  Sex: Male
  Weight: 90 kg

DRUGS (15)
  1. AVANDAMET [Suspect]
     Dosage: 3006MG SINGLE DOSE
     Route: 048
  2. VOLMAC [Suspect]
     Dosage: 24MG SINGLE DOSE
     Route: 048
  3. ALLOPURINOL [Suspect]
     Dosage: 900MG SINGLE DOSE
     Route: 048
  4. ASPIRIN [Suspect]
     Dosage: 300MG SINGLE DOSE
     Route: 048
  5. ENALAPRIL MALEATE [Suspect]
     Dosage: 60MG SINGLE DOSE
     Route: 048
  6. FERRUM [Suspect]
     Dosage: 3TAB SINGLE DOSE
     Route: 048
  7. INEGY [Suspect]
     Dosage: 150MG SINGLE DOSE
     Route: 048
  8. MOXONIDIN [Suspect]
     Dosage: 1.2MG SINGLE DOSE
     Route: 048
  9. NEBILET [Suspect]
     Dosage: 30MG SINGLE DOSE
     Route: 048
  10. NORVASC [Suspect]
     Dosage: 30MG SINGLE DOSE
     Route: 048
  11. REKAWAN [Suspect]
     Dosage: 1800MG SINGLE DOSE
     Route: 048
  12. TAMSULOSIN HCL [Suspect]
     Dosage: 1.2MG SINGLE DOSE
     Route: 048
  13. TOREM [Suspect]
     Dosage: 450MG SINGLE DOSE
     Route: 048
  14. VALORON N RETARD [Suspect]
     Dosage: 960MG SINGLE DOSE
     Route: 048
  15. OLMESARTAN MEDOXOMIL AND HYDROCHLOROTHIZIDE [Suspect]
     Dosage: 97.5MG SINGLE DOSE
     Route: 048

REACTIONS (2)
  - ACCIDENTAL OVERDOSE [None]
  - HYPOTENSION [None]
